FAERS Safety Report 10622750 (Version 4)
Quarter: 2016Q2

REPORT INFORMATION
  Report Type: Spontaneous
  Country: US (occurrence: US)
  Receive Date: 20141203
  Receipt Date: 20160502
  Transmission Date: 20160815
  Serious: No
  Sender: FDA-Public Use
  Company Number: US-PFIZER INC-2014291052

PATIENT
  Age: 44 Year
  Sex: Male

DRUGS (4)
  1. DEPO-PROVERA [Suspect]
     Active Substance: MEDROXYPROGESTERONE ACETATE
     Indication: MUSCULOSKELETAL PAIN
     Dosage: 112 MG, UNK (ABOUT THREE-QUARTERS OF THE 1 ML VOLUME)
  2. DEPO-MEDROL [Suspect]
     Active Substance: METHYLPREDNISOLONE ACETATE
     Indication: MUSCULOSKELETAL PAIN
  3. DEPO-MEDROL [Suspect]
     Active Substance: METHYLPREDNISOLONE ACETATE
     Indication: ROTATOR CUFF SYNDROME
     Route: 014
  4. DEPO-PROVERA [Suspect]
     Active Substance: MEDROXYPROGESTERONE ACETATE
     Indication: ROTATOR CUFF SYNDROME
     Dosage: 112.5 MG, UNK (112.5 MG (3/4 CC OF 150 MG 1 CC VIAL)
     Route: 014

REACTIONS (4)
  - Erectile dysfunction [Recovering/Resolving]
  - Incorrect route of drug administration [Unknown]
  - Wrong drug administered [Unknown]
  - Loss of libido [Recovering/Resolving]
